FAERS Safety Report 9914696 (Version 1)
Quarter: 2014Q1

REPORT INFORMATION
  Report Type: Spontaneous
  Country: US (occurrence: US)
  Receive Date: 20140220
  Receipt Date: 20140220
  Transmission Date: 20141002
  Serious: Yes (Hospitalization, Other)
  Sender: FDA-Public Use
  Company Number: US-TEVA-463796USA

PATIENT
  Age: 74 Year
  Sex: Male

DRUGS (11)
  1. MESALAZINE [Suspect]
     Indication: CROHN^S DISEASE
     Route: 065
  2. ASPIRIN [Concomitant]
     Route: 065
  3. BUDESONIDE [Concomitant]
     Route: 065
  4. DOCUSATE SODIUM [Concomitant]
     Route: 065
  5. OMEPRAZOLE [Concomitant]
     Route: 065
  6. NIACIN [Concomitant]
     Route: 065
  7. METOPROLOL [Concomitant]
     Route: 065
  8. LISINOPRIL [Concomitant]
     Route: 065
  9. ISOSORBIDE MONONITRATE [Concomitant]
     Route: 065
  10. GABAPENTIN [Concomitant]
     Route: 065
  11. ROSUVASTATIN [Concomitant]
     Route: 065

REACTIONS (3)
  - Agranulocytosis [Recovering/Resolving]
  - Klebsiella infection [Unknown]
  - Febrile neutropenia [Unknown]
